FAERS Safety Report 5684317-9 (Version None)
Quarter: 2008Q1

REPORT INFORMATION
  Report Type: 
  Country: None (occurrence: None)
  Receive Date: 20080328
  Receipt Date: 20080321
  Transmission Date: 20080703
  Serious: Yes (Death, Hospitalization)
  Sender: FDA-Public Use
  Company Number: A0709965A

PATIENT
  Sex: Female
  Weight: 70.5 kg

DRUGS (11)
  1. TYKERB [Suspect]
     Indication: BREAST CANCER
     Route: 048
     Dates: start: 20070809
  2. COUMADIN [Concomitant]
  3. AROMASIN [Concomitant]
     Route: 048
     Dates: start: 20070706
  4. HYDROCHLOROTHIAZIDE [Concomitant]
  5. PEXEVA [Concomitant]
     Indication: DEPRESSION
     Dosage: 2.5MG UNKNOWN
     Route: 048
  6. AREDIA [Concomitant]
  7. GLUCOTROL XL [Concomitant]
     Dosage: 5MG IN THE MORNING
  8. FASLODEX [Concomitant]
     Indication: BREAST CANCER
     Dosage: 125MG CYCLIC
     Dates: start: 20071220
  9. IXEMPRA [Concomitant]
     Indication: DISEASE PROGRESSION
     Route: 042
     Dates: start: 20080130
  10. MORPHINE [Concomitant]
  11. ADRIAMYCIN PFS [Concomitant]
     Dosage: 20MG WEEKLY

REACTIONS (12)
  - ANOREXIA [None]
  - ASTHENIA [None]
  - BACK PAIN [None]
  - BREAST CANCER METASTATIC [None]
  - DISORIENTATION [None]
  - DYSPNOEA [None]
  - HYPERSOMNIA [None]
  - MALAISE [None]
  - NAUSEA [None]
  - PAIN [None]
  - PRESYNCOPE [None]
  - VOMITING [None]
